FAERS Safety Report 10101430 (Version 1)
Quarter: 2014Q2

REPORT INFORMATION
  Report Type: Spontaneous
  Country: US (occurrence: US)
  Receive Date: 20140424
  Receipt Date: 20140424
  Transmission Date: 20141212
  Serious: No
  Sender: FDA-Public Use
  Company Number: US-BAYER-2014-058700

PATIENT
  Age: 49 Year
  Sex: Female

DRUGS (2)
  1. CLIMARA [Suspect]
     Indication: HOT FLUSH
     Dosage: UNK UNK, OW
     Route: 062
     Dates: start: 201309
  2. CLIMARA [Suspect]
     Indication: INSOMNIA

REACTIONS (4)
  - Product adhesion issue [Not Recovered/Not Resolved]
  - Application site irritation [Not Recovered/Not Resolved]
  - Skin discolouration [Not Recovered/Not Resolved]
  - Skin injury [Not Recovered/Not Resolved]
